FAERS Safety Report 13619402 (Version 1)
Quarter: 2017Q2

REPORT INFORMATION
  Report Type: Spontaneous
  Country: US (occurrence: US)
  Receive Date: 20170606
  Receipt Date: 20170606
  Transmission Date: 20170830
  Serious: Yes (Other)
  Sender: FDA-Public Use
  Company Number: None

PATIENT
  Age: 69 Year
  Sex: Female
  Weight: 96.3 kg

DRUGS (18)
  1. HYDROMORPHONE [Concomitant]
     Active Substance: HYDROMORPHONE
  2. MEROPENEM. [Concomitant]
     Active Substance: MEROPENEM
  3. ACYCLOVIR. [Concomitant]
     Active Substance: ACYCLOVIR
  4. TRANEXAMIC ACID. [Concomitant]
     Active Substance: TRANEXAMIC ACID
  5. METRONIDAZOLE. [Concomitant]
     Active Substance: METRONIDAZOLE
  6. PHENYLEPHRINE [Concomitant]
     Active Substance: PHENYLEPHRINE\PHENYLEPHRINE HYDROCHLORIDE
  7. METOPROLOL. [Concomitant]
     Active Substance: METOPROLOL
  8. MIDOSTAURIN [Suspect]
     Active Substance: MIDOSTAURIN
     Indication: ACUTE MYELOID LEUKAEMIA
     Route: 048
     Dates: start: 20170526, end: 20170602
  9. CYTARABINE. [Concomitant]
     Active Substance: CYTARABINE
  10. DILTIAZEM INFUSION [Concomitant]
  11. ACETAMINOPHEN. [Concomitant]
     Active Substance: ACETAMINOPHEN
  12. POTASSIUM PHOSPHATE [Concomitant]
     Active Substance: POTASSIUM PHOSPHATE
  13. ONDANSETRON [Concomitant]
     Active Substance: ONDANSETRON
  14. PROTONIX [Concomitant]
     Active Substance: PANTOPRAZOLE SODIUM
  15. PHYTONADIONE. [Concomitant]
     Active Substance: PHYTONADIONE
  16. POTASSIUM CHLORIDE. [Concomitant]
     Active Substance: POTASSIUM CHLORIDE
  17. IDARUBICIN [Concomitant]
     Active Substance: IDARUBICIN
  18. CASPOFUNGIN [Concomitant]
     Active Substance: CASPOFUNGIN

REACTIONS (4)
  - Atrial fibrillation [None]
  - Brain neoplasm [None]
  - Neutropenic colitis [None]
  - Hemianopia [None]

NARRATIVE: CASE EVENT DATE: 20170605
